FAERS Safety Report 6671968-8 (Version None)
Quarter: 2010Q2

REPORT INFORMATION
  Report Type: 
  Country: None (occurrence: None)
  Receive Date: 20100405
  Receipt Date: 20100324
  Transmission Date: 20101027
  Serious: Yes (Hospitalization)
  Sender: FDA-Public Use
  Company Number: 2009AC000321

PATIENT
  Age: 43 Year
  Sex: Female

DRUGS (14)
  1. DIGOXIN [Suspect]
     Indication: ATRIAL FIBRILLATION
     Dosage: 0.125 MG;QD;PO
     Route: 048
     Dates: start: 19960501, end: 20070101
  2. DIGOXIN [Suspect]
     Dosage: 0.25 MG;QD;PO
     Route: 048
     Dates: start: 20050101
  3. DIGOXIN [Suspect]
     Dosage: 0.125 MG;BID;PO
     Route: 048
     Dates: start: 20080601, end: 20080701
  4. VERAPAMIL [Concomitant]
  5. PLAVIX [Concomitant]
  6. ASPIRIN [Concomitant]
  7. ECOTRIN [Concomitant]
  8. ASPIRIN [Concomitant]
  9. VERAPAMIL [Concomitant]
  10. BETAPACE [Concomitant]
  11. PLAVIX [Concomitant]
  12. COUMADIN [Concomitant]
  13. TOPAMAX [Concomitant]
  14. IMITREX [Concomitant]

REACTIONS (33)
  - ANKLE FRACTURE [None]
  - ARTHRALGIA [None]
  - ATRIAL FIBRILLATION [None]
  - ATRIAL FLUTTER [None]
  - BLOOD GLUCOSE INCREASED [None]
  - BLOOD PRESSURE DECREASED [None]
  - CARDIOACTIVE DRUG LEVEL DECREASED [None]
  - COUGH [None]
  - DIASTOLIC DYSFUNCTION [None]
  - DIZZINESS [None]
  - DYSPNOEA [None]
  - ECONOMIC PROBLEM [None]
  - ELECTROCARDIOGRAM ST SEGMENT ABNORMAL [None]
  - EXOSTOSIS [None]
  - FALL [None]
  - HEADACHE [None]
  - HEART RATE INCREASED [None]
  - INFLUENZA [None]
  - JOINT SPRAIN [None]
  - JOINT SWELLING [None]
  - LEFT ATRIAL DILATATION [None]
  - LEFT VENTRICULAR HYPERTROPHY [None]
  - MITRAL VALVE INCOMPETENCE [None]
  - MULTIPLE INJURIES [None]
  - OBESITY [None]
  - PALPITATIONS [None]
  - PULMONARY HYPERTENSION [None]
  - SINUS BRADYCARDIA [None]
  - SURGERY [None]
  - TREATMENT NONCOMPLIANCE [None]
  - TRICUSPID VALVE INCOMPETENCE [None]
  - UNEVALUABLE EVENT [None]
  - UPPER RESPIRATORY TRACT INFECTION [None]
